FAERS Safety Report 22217957 (Version 1)
Quarter: 2023Q2

REPORT INFORMATION
  Report Type: Spontaneous
  Country: DK (occurrence: DK)
  Receive Date: 20230417
  Receipt Date: 20230417
  Transmission Date: 20230722
  Serious: Yes (Death, Hospitalization)
  Sender: FDA-Public Use
  Company Number: None

PATIENT
  Age: 54 Year
  Sex: Male

DRUGS (2)
  1. CARBOPLATIN [Suspect]
     Active Substance: CARBOPLATIN
     Indication: Lung cancer metastatic
     Dosage: STRENGTH: 10 MG/ML
     Dates: start: 20210612
  2. VEPESID [Suspect]
     Active Substance: ETOPOSIDE
     Indication: Lung cancer metastatic
     Dosage: STRENGTH: 50 MG
     Dates: start: 20210612

REACTIONS (6)
  - Abdominal pain [Unknown]
  - Sepsis [Fatal]
  - Gastrointestinal infection [Unknown]
  - Faecaloma [Unknown]
  - Hypotension [Unknown]
  - Decreased immune responsiveness [Fatal]

NARRATIVE: CASE EVENT DATE: 20210601
